FAERS Safety Report 13207011 (Version 1)
Quarter: 2017Q1

REPORT INFORMATION
  Report Type: Spontaneous
  Country: US (occurrence: US)
  Receive Date: 20170209
  Receipt Date: 20170209
  Transmission Date: 20170428
  Serious: No
  Sender: FDA-Public Use
  Company Number: None

PATIENT
  Age: 64 Year
  Sex: Male
  Weight: 108 kg

DRUGS (1)
  1. MOVIPREP [Suspect]
     Active Substance: ASCORBIC ACID\POLYETHYLENE GLYCOL 3350\POTASSIUM CHLORIDE\SODIUM ASCORBATE\SODIUM CHLORIDE\SODIUM SULFATE
     Indication: COLONOSCOPY
     Dosage: ?          QUANTITY:2 PATCH(ES);?
     Route: 048
     Dates: start: 20170209, end: 20170209

REACTIONS (3)
  - Nausea [None]
  - Abdominal pain [None]
  - Vomiting [None]

NARRATIVE: CASE EVENT DATE: 20170209
